FAERS Safety Report 6738117-9 (Version None)
Quarter: 2010Q2

REPORT INFORMATION
  Report Type: 
  Country: None (occurrence: None)
  Receive Date: 20100520
  Receipt Date: 20100512
  Transmission Date: 20101027
  Serious: Yes (Other)
  Sender: FDA-Public Use
  Company Number: 2010SP026890

PATIENT
  Age: 57 Year
  Sex: Female
  Weight: 57 kg

DRUGS (16)
  1. REMERGIL (MIRTAZAPINE /01293201/) [Suspect]
     Indication: DRUG USE FOR UNKNOWN INDICATION
     Dosage: 45 MG; QD; PO, 30 GTT; QD; PO
     Route: 048
     Dates: end: 20071008
  2. REMERGIL (MIRTAZAPINE /01293201/) [Suspect]
     Indication: DRUG USE FOR UNKNOWN INDICATION
     Dosage: 45 MG; QD; PO, 30 GTT; QD; PO
     Route: 048
     Dates: start: 20071009
  3. PAROXETINE HCL [Suspect]
     Indication: DRUG USE FOR UNKNOWN INDICATION
     Dosage: 60 MG; QD; PO, 40 MG; QD; PO
     Route: 048
     Dates: end: 20071010
  4. PAROXETINE HCL [Suspect]
     Indication: DRUG USE FOR UNKNOWN INDICATION
     Dosage: 60 MG; QD; PO, 40 MG; QD; PO
     Route: 048
     Dates: start: 20071011
  5. PEROCUR FORTE (SACCHAROMYCES BOULARDII) [Concomitant]
  6. CALCIUM AL [Concomitant]
  7. UNIZINK [Concomitant]
  8. MAGNESIUM VERLA N /01455601/ [Concomitant]
  9. SELENASE PERORAL (SELENIDE SODIUM) [Concomitant]
  10. MUTAFLOR [Concomitant]
  11. BISOPROLOL HEUMANN (BISOPROLOL FUMARATE) [Concomitant]
  12. VANCOMYCINE LILLY [Concomitant]
  13. FOLSAN [Concomitant]
  14. HELIXOR M /01347501/ [Concomitant]
  15. NUX VOMICA (HOMEOPATICS NOS) [Concomitant]
  16. MAGNESIUM [Concomitant]

REACTIONS (3)
  - RESTLESSNESS [None]
  - SEROTONIN SYNDROME [None]
  - TREMOR [None]
